FAERS Safety Report 4763768-0 (Version None)
Quarter: 2005Q3

REPORT INFORMATION
  Report Type: 
  Country: None (occurrence: None)
  Receive Date: 20050908
  Receipt Date: 20050801
  Transmission Date: 20060218
  Serious: Yes (Other)
  Sender: FDA-Public Use
  Company Number: US-NOVOPROD-245960

PATIENT
  Age: 85 Year
  Sex: Female
  Weight: 53 kg

DRUGS (2)
  1. NOVOLIN R [Suspect]
     Indication: DIABETES MELLITUS
     Dosage: 4 IU, SINGLE
     Route: 058
     Dates: start: 20050731
  2. NOVOLIN R [Suspect]
     Dosage: SLIDING SCALE
     Route: 058

REACTIONS (4)
  - COUGH [None]
  - NASOPHARYNGEAL DISORDER [None]
  - PARAESTHESIA [None]
  - THROAT IRRITATION [None]
